FAERS Safety Report 12137612 (Version 1)
Quarter: 2016Q1

REPORT INFORMATION
  Report Type: Spontaneous
  Country: US (occurrence: US)
  Receive Date: 20160302
  Receipt Date: 20160302
  Transmission Date: 20160526
  Serious: No
  Sender: FDA-Public Use
  Company Number: US-ACTAVIS-2015-14102

PATIENT
  Age: 63 Year
  Sex: Male
  Weight: 95 kg

DRUGS (2)
  1. LORATADINE/PSEUDOEPHEDRINE SULFATE (ACTAVIS LABORATORIES FL) [Suspect]
     Active Substance: LORATADINE\PSEUDOEPHEDRINE SULFATE
     Indication: NASAL CONGESTION
     Dosage: UNK, SINGLE
     Route: 048
     Dates: start: 201505, end: 201505
  2. LORATADINE/PSEUDOEPHEDRINE SULFATE (ACTAVIS LABORATORIES FL) [Suspect]
     Active Substance: LORATADINE\PSEUDOEPHEDRINE SULFATE
     Indication: NASOPHARYNGITIS
     Dosage: 1/2 TABLET
     Route: 048
     Dates: start: 201505, end: 201505

REACTIONS (3)
  - Wrong technique in product usage process [Unknown]
  - Insomnia [Recovered/Resolved]
  - Headache [Recovered/Resolved]

NARRATIVE: CASE EVENT DATE: 201505
